FAERS Safety Report 6929732-8 (Version None)
Quarter: 2010Q3

REPORT INFORMATION
  Report Type: 
  Country: None (occurrence: None)
  Receive Date: 20100818
  Receipt Date: 20100804
  Transmission Date: 20110219
  Serious: Yes (Hospitalization)
  Sender: FDA-Public Use
  Company Number: CA-PAR PHARMACEUTICAL, INC-2010SCPR001992

PATIENT

DRUGS (9)
  1. IBUPROFEN [Suspect]
     Indication: PRODUCT USED FOR UNKNOWN INDICATION
     Dosage: EVERY 4 TO 6 HOURS AS NEEDED
     Route: 048
     Dates: start: 20100101
  2. ASPIRIN [Suspect]
     Indication: PRODUCT USED FOR UNKNOWN INDICATION
     Dosage: 80 MG, DAILY
     Route: 048
     Dates: start: 20050626
  3. IMC-11F8 (RH ANTI-EGFR MAB) [Suspect]
     Indication: NON-SMALL CELL LUNG CANCER
     Dosage: 600 MG, SINGLE
     Route: 042
     Dates: start: 20100608, end: 20100608
  4. IMC-11F8 (RH ANTI-EGFR MAB) [Suspect]
     Dosage: 600 MG, UNK
     Route: 042
     Dates: start: 20100707
  5. PEMETREXED [Suspect]
     Indication: NON-SMALL CELL LUNG CANCER
     Dosage: 893 MG, UNK
     Route: 042
     Dates: start: 20100608, end: 20100608
  6. PEMETREXED [Suspect]
     Dosage: 893 MG, UNK
     Route: 042
     Dates: start: 20100707
  7. CISPLATIN [Suspect]
     Indication: NON-SMALL CELL LUNG CANCER
     Dosage: 133 MG, UNK
     Route: 042
     Dates: start: 20100608, end: 20100608
  8. CISPLATIN [Suspect]
     Dosage: 133 MG, UNKNOWN
     Route: 042
     Dates: start: 20100707
  9. DECADRON [Concomitant]
     Indication: PRODUCT USED FOR UNKNOWN INDICATION
     Dosage: 8 MG, QD
     Route: 065
     Dates: start: 20100608, end: 20100716

REACTIONS (2)
  - HAEMOGLOBIN DECREASED [None]
  - MELAENA [None]
